FAERS Safety Report 21418043 (Version 1)
Quarter: 2022Q4

REPORT INFORMATION
  Report Type: Spontaneous
  Country: DE (occurrence: None)
  Receive Date: 20221006
  Receipt Date: 20221006
  Transmission Date: 20230113
  Serious: Yes (Other)
  Sender: FDA-Public Use
  Company Number: DE-ROCHE-3188266

PATIENT
  Age: 58 Year
  Sex: Male

DRUGS (6)
  1. OCREVUS [Suspect]
     Active Substance: OCRELIZUMAB
     Indication: Multiple sclerosis
     Route: 065
     Dates: start: 201804
  2. COVID-19 VACCINE [Concomitant]
     Dosage: BOOSTER VACCINATION (3RD VACCINATION FROM BIONTECH)
     Dates: start: 20211012, end: 20211012
  3. EZETIMIBE [Concomitant]
     Active Substance: EZETIMIBE
  4. VITAMIN D [Concomitant]
     Active Substance: VITAMIN D NOS
  5. VITAMIN B12 [Concomitant]
     Active Substance: CYANOCOBALAMIN
     Route: 048
  6. TIZANIDINE [Concomitant]
     Active Substance: TIZANIDINE

REACTIONS (3)
  - Transitional cell carcinoma [Not Recovered/Not Resolved]
  - Cerebral cyst [Unknown]
  - COVID-19 [Recovered/Resolved]

NARRATIVE: CASE EVENT DATE: 20210101
